FAERS Safety Report 20462364 (Version 1)
Quarter: 2022Q1

REPORT INFORMATION
  Report Type: Spontaneous
  Country: GB (occurrence: GB)
  Receive Date: 20220211
  Receipt Date: 20220211
  Transmission Date: 20220423
  Serious: Yes (Other)
  Sender: FDA-Public Use
  Company Number: GB-TAKEDA-2022TUS008449

PATIENT
  Age: 29 Year
  Sex: Female

DRUGS (3)
  1. VONICOG ALFA [Suspect]
     Active Substance: VONICOG ALFA
     Indication: Von Willebrand^s disease
     Dosage: 2600 INTERNATIONAL UNIT
     Route: 065
  2. VONICOG ALFA [Suspect]
     Active Substance: VONICOG ALFA
     Dosage: 1800 INTERNATIONAL UNIT
     Route: 065
  3. VONICOG ALFA [Suspect]
     Active Substance: VONICOG ALFA
     Dosage: 1300 INTERNATIONAL UNIT
     Route: 065

REACTIONS (4)
  - Postpartum haemorrhage [Unknown]
  - Uterine atony [Unknown]
  - Exposure during pregnancy [Unknown]
  - Off label use [Unknown]
